FAERS Safety Report 7828726-8 (Version None)
Quarter: 2011Q4

REPORT INFORMATION
  Report Type: 
  Country: None (occurrence: None)
  Receive Date: 20111019
  Receipt Date: 20111011
  Transmission Date: 20120403
  Serious: Yes (Death, Hospitalization)
  Sender: FDA-Public Use
  Company Number: 2011AT000397

PATIENT
  Age: 76 Year
  Sex: Female

DRUGS (7)
  1. DIGOXIN [Concomitant]
  2. PROPIONATE (CON.) [Concomitant]
  3. SALMETEROL [Concomitant]
  4. TRIMETHOPRIM [Suspect]
     Indication: URINARY TRACT INFECTION
  5. FLUTICASONE PROPIONATE [Concomitant]
  6. THEOPHYLLINE [Suspect]
     Indication: CHRONIC OBSTRUCTIVE PULMONARY DISEASE
     Dosage: 175 MG, BID
  7. XINAFOATE [Concomitant]

REACTIONS (3)
  - SEPSIS [None]
  - GRAND MAL CONVULSION [None]
  - DRUG LEVEL INCREASED [None]
